FAERS Safety Report 18087001 (Version 1)
Quarter: 2020Q3

REPORT INFORMATION
  Report Type: Spontaneous
  Country: US (occurrence: US)
  Receive Date: 20200728
  Receipt Date: 20200728
  Transmission Date: 20201103
  Serious: Yes (Other)
  Sender: FDA-Public Use
  Company Number: None

PATIENT
  Age: 4 Year
  Sex: Female

DRUGS (1)
  1. BORN BASIC. ANTI?BAC HAND SANITIZER 65 PERCENT [Suspect]
     Active Substance: ALCOHOL
     Indication: INFECTION PROPHYLAXIS
     Dosage: ?          QUANTITY:34 OUNCE(S);?
     Route: 061
     Dates: start: 20200526, end: 20200726

REACTIONS (6)
  - Recalled product administered [None]
  - Product contamination chemical [None]
  - Headache [None]
  - Blood methanol [None]
  - Abdominal pain [None]
  - Recalled product [None]

NARRATIVE: CASE EVENT DATE: 20200727
